FAERS Safety Report 18610147 (Version 1)
Quarter: 2020Q4

REPORT INFORMATION
  Report Type: Spontaneous
  Country: FR (occurrence: FR)
  Receive Date: 20201214
  Receipt Date: 20201214
  Transmission Date: 20210114
  Serious: Yes (Other)
  Sender: FDA-Public Use
  Company Number: NVSC2020FR326054

PATIENT
  Sex: Female
  Weight: 49 kg

DRUGS (1)
  1. TACROLIMUS. [Suspect]
     Active Substance: TACROLIMUS
     Indication: RENAL TRANSPLANT
     Dosage: UNK(UNK UNK, UNKNOWN FREQ)
     Route: 065

REACTIONS (2)
  - Enterococcal infection [Recovered/Resolved]
  - Morganella infection [Recovered/Resolved]

NARRATIVE: CASE EVENT DATE: 20190510
